FAERS Safety Report 18851434 (Version 1)
Quarter: 2021Q1

REPORT INFORMATION
  Report Type: Spontaneous
  Country: US (occurrence: US)
  Receive Date: 20210204
  Receipt Date: 20210204
  Transmission Date: 20210420
  Serious: Yes (Other)
  Sender: FDA-Public Use
  Company Number: None

PATIENT
  Age: 32 Year
  Sex: Female
  Weight: 45 kg

DRUGS (6)
  1. GABAPENTIN 100MG [Concomitant]
     Active Substance: GABAPENTIN
  2. SERTRALINE HCL 50MG [Concomitant]
     Active Substance: SERTRALINE HYDROCHLORIDE
  3. HUMIRA [Suspect]
     Active Substance: ADALIMUMAB
     Indication: COLITIS ULCERATIVE
     Dosage: ?          OTHER FREQUENCY:EVERY OTHER WEEK;?
     Route: 058
     Dates: start: 20200903, end: 20210123
  4. HUMIRA [Suspect]
     Active Substance: ADALIMUMAB
     Indication: IRRITABLE BOWEL SYNDROME
     Dosage: ?          OTHER FREQUENCY:EVERY OTHER WEEK;?
     Route: 058
     Dates: start: 20200903, end: 20210123
  5. VITAMIN D2 [Concomitant]
     Active Substance: ERGOCALCIFEROL
  6. WOMEN^S DAILY FORMULA TABLETS [Concomitant]

REACTIONS (4)
  - Feeling abnormal [None]
  - Muscular weakness [None]
  - Fall [None]
  - Neuralgia [None]

NARRATIVE: CASE EVENT DATE: 20210123
